FAERS Safety Report 6292660-8 (Version None)
Quarter: 2009Q3

REPORT INFORMATION
  Report Type: 
  Country: None (occurrence: None)
  Receive Date: 20090731
  Receipt Date: 20090729
  Transmission Date: 20100115
  Serious: Yes (Other)
  Sender: FDA-Public Use
  Company Number: US-JNJCH-2009018067

PATIENT
  Age: 32 Year
  Sex: Female
  Weight: 61.2 kg

DRUGS (1)
  1. COOL MINT LISTERINE [Suspect]
     Indication: DENTAL DISORDER PROPHYLAXIS
     Dosage: TEXT:RECOMMEND DOSAGE ONCE
     Route: 048
     Dates: start: 20090630, end: 20090630

REACTIONS (3)
  - ORAL DISCOMFORT [None]
  - PRODUCT QUALITY ISSUE [None]
  - PRODUCT TAMPERING [None]
